FAERS Safety Report 4990849-9 (Version None)
Quarter: 2006Q2

REPORT INFORMATION
  Report Type: 
  Country: None (occurrence: None)
  Receive Date: 20060428
  Receipt Date: 20060418
  Transmission Date: 20061013
  Serious: Yes (Other)
  Sender: FDA-Public Use
  Company Number: TUK2006A00025

PATIENT
  Age: 65 Year
  Sex: Female

DRUGS (10)
  1. ACTOS [Suspect]
     Indication: DIABETES MELLITUS NON-INSULIN-DEPENDENT
     Dosage: 30 MG
     Route: 048
     Dates: start: 20060323, end: 20060403
  2. NITRAZEPAM [Concomitant]
  3. ASPIRIN [Concomitant]
  4. GLYCERYL TRINITRATE [Concomitant]
  5. ATENOLOL [Concomitant]
  6. BECONASE (BECLOMETASONE DIPROPIONATE) [Concomitant]
  7. METFORMIN [Concomitant]
  8. PEPTAC (SODIUM BICARBONATE, CALCIUM CARBONATE, SODIUM ALGINATE) [Concomitant]
  9. CO-CODAMOL (CODEINE PHOSPHATE, PARACETAMOL) [Concomitant]
  10. ATORVASTATIN CALCIUM [Concomitant]

REACTIONS (1)
  - ARTHRALGIA [None]
